FAERS Safety Report 12979894 (Version 1)
Quarter: 2016Q4

REPORT INFORMATION
  Report Type: Spontaneous
  Country: FR (occurrence: FR)
  Receive Date: 20161128
  Receipt Date: 20161128
  Transmission Date: 20170207
  Serious: Yes (Other)
  Sender: FDA-Public Use
  Company Number: FR-PERRIGO-16FR021918

PATIENT

DRUGS (1)
  1. IBUPROFEN. [Suspect]
     Active Substance: IBUPROFEN
     Indication: PARONYCHIA
     Dosage: UNKNOWN, UNKNOWN
     Route: 048

REACTIONS (1)
  - Cellulitis [Recovered/Resolved]
